FAERS Safety Report 25031970 (Version 1)
Quarter: 2025Q1

REPORT INFORMATION
  Report Type: Spontaneous
  Country: US (occurrence: None)
  Receive Date: 20250302
  Receipt Date: 20250302
  Transmission Date: 20250408
  Serious: Yes (Disabling)
  Sender: FDA-CTU
  Company Number: None

PATIENT
  Age: 64 Year
  Sex: Female

DRUGS (10)
  1. SEMAGLUTIDE [Suspect]
     Active Substance: SEMAGLUTIDE
     Indication: Obesity
     Route: 058
     Dates: start: 20250211, end: 20250222
  2. SEMAGLUTIDE [Suspect]
     Active Substance: SEMAGLUTIDE
     Indication: Type 2 diabetes mellitus
  3. LISINOPRIL [Concomitant]
     Active Substance: LISINOPRIL
  4. MESALAMINE [Concomitant]
     Active Substance: MESALAMINE
  5. new thiazide diuretic [Concomitant]
  6. TRAMADOL [Concomitant]
     Active Substance: TRAMADOL
  7. blood pressure [Concomitant]
  8. IBUPROFEN [Concomitant]
     Active Substance: IBUPROFEN
  9. vitamin d3/k2 [Concomitant]
  10. VITAMINS [Concomitant]
     Active Substance: VITAMINS

REACTIONS (4)
  - Palpitations [None]
  - Diastolic hypertension [None]
  - Heart rate increased [None]
  - Therapy cessation [None]

NARRATIVE: CASE EVENT DATE: 20250211
